FAERS Safety Report 8459783 (Version 2)
Quarter: 2013Q1

REPORT INFORMATION
  Report Type: Spontaneous
  Country: US (occurrence: US)
  Receive Date: 20120314
  Receipt Date: 20130314
  Transmission Date: 20140127
  Serious: Yes (Other)
  Sender: FDA-Public Use
  Company Number: US-ASTRAZENECA-2011SE34965

PATIENT
  Age: 82 Year
  Sex: Female

DRUGS (3)
  1. TOPROL XL [Suspect]
     Indication: ARRHYTHMIA
     Route: 048
  2. TOPROL XL [Suspect]
     Indication: ARRHYTHMIA
     Route: 048
  3. UNSPECIFIED INGREDIENTS [Suspect]
     Route: 065

REACTIONS (5)
  - Nasopharyngitis [Unknown]
  - Dysphonia [Unknown]
  - Malaise [Unknown]
  - Feeling abnormal [Unknown]
  - Drug ineffective [Unknown]
